FAERS Safety Report 7053194-6 (Version None)
Quarter: 2010Q4

REPORT INFORMATION
  Report Type: 
  Country: None (occurrence: None)
  Receive Date: 20101020
  Receipt Date: 20101008
  Transmission Date: 20110411
  Serious: Yes (Hospitalization, Other)
  Sender: FDA-Public Use
  Company Number: US-JNJFOC-20101002677

PATIENT
  Sex: Female
  Weight: 56.3 kg

DRUGS (5)
  1. REMICADE [Suspect]
     Indication: INFLAMMATORY BOWEL DISEASE
     Route: 042
  2. ADALIMUMAB [Concomitant]
  3. LYRICA [Concomitant]
  4. AMITRIPTYLINE HCL [Concomitant]
  5. PREVACID [Concomitant]

REACTIONS (1)
  - MIGRAINE [None]
